FAERS Safety Report 9213460 (Version 5)
Quarter: 2013Q3

REPORT INFORMATION
  Report Type: Spontaneous
  Country: CO (occurrence: CO)
  Receive Date: 20130405
  Receipt Date: 20130725
  Transmission Date: 20140515
  Serious: Yes (Death, Other)
  Sender: FDA-Public Use
  Company Number: CO-MPIJNJ-2013-01815

PATIENT
  Sex: 0

DRUGS (2)
  1. VELCADE [Suspect]
     Indication: PLASMA CELL MYELOMA
     Dosage: 2 MG, CYCLIC
     Route: 042
     Dates: start: 20130121, end: 20130301
  2. VELCADE [Suspect]
     Dosage: 3.5 MG, UNK
     Route: 065

REACTIONS (3)
  - Drug ineffective [Fatal]
  - Haemoglobin decreased [Fatal]
  - Plasma cell myeloma [Fatal]
